FAERS Safety Report 14951528 (Version 1)
Quarter: 2018Q2

REPORT INFORMATION
  Report Type: Report from Study
  Country: BR (occurrence: BR)
  Receive Date: 20180530
  Receipt Date: 20180530
  Transmission Date: 20180711
  Serious: Yes (Hospitalization)
  Sender: FDA-Public Use
  Company Number: PHHY2018BR008171

PATIENT
  Sex: Female
  Weight: 61 kg

DRUGS (1)
  1. COSENTYX [Suspect]
     Active Substance: SECUKINUMAB
     Indication: ANKYLOSING SPONDYLITIS
     Dosage: 150 MG, UNK
     Route: 058
     Dates: start: 20180503

REACTIONS (5)
  - Zika virus infection [Unknown]
  - Cardiac disorder [Unknown]
  - Dehydration [Unknown]
  - Nephrolithiasis [Unknown]
  - Diarrhoea [Unknown]
